FAERS Safety Report 8266236-7 (Version None)
Quarter: 2012Q2

REPORT INFORMATION
  Report Type: 
  Country: None (occurrence: None)
  Receive Date: 20120406
  Receipt Date: 20120406
  Transmission Date: 20120825
  Serious: Yes (Hospitalization, Other)
  Sender: FDA-Public Use
  Company Number: US-ASTELLAS-2012US000267

PATIENT
  Sex: Male
  Weight: 94 kg

DRUGS (11)
  1. MYCOPHENOLATE MOFETIL (CELLCEPT) [Concomitant]
     Indication: PROPHYLAXIS AGAINST GRAFT VERSUS HOST DISEASE
     Dosage: 750 MG, Q12 HOURS
     Route: 065
  2. ACTIGALL [Concomitant]
     Indication: LIVER DISORDER
     Dosage: 300 MG, TID
     Route: 065
  3. IMODIUM A-D [Concomitant]
     Indication: DIARRHOEA
     Dosage: 2 MG, PRN
     Route: 065
  4. PROGRAF [Suspect]
     Dosage: 0.5-0.7 MG EVERY 12 HOURS
     Route: 042
     Dates: start: 20071109, end: 20071115
  5. MULTI-VITAMIN [Concomitant]
     Indication: VITAMIN SUPPLEMENTATION
     Dosage: 1 DF, UID/QD
     Route: 048
  6. AMBIEN CR [Concomitant]
     Indication: INSOMNIA
     Dosage: 12.5 MG, PRN
     Route: 065
  7. PRILOSEC [Concomitant]
     Indication: GASTRITIS PROPHYLAXIS
     Dosage: 20 MG, UNKNOWN/D
     Route: 065
  8. PROGRAF [Suspect]
     Indication: PROPHYLAXIS AGAINST GRAFT VERSUS HOST DISEASE
     Dosage: 2-2.5 MG EVERY 12 HOURS
     Route: 048
     Dates: start: 20071022, end: 20071109
  9. ATIVAN [Concomitant]
     Indication: NAUSEA
     Dosage: 1 MG, PRN
     Route: 065
  10. PROGRAF [Suspect]
     Dosage: 1.0-2.0 MG EVERY 12 HOURS
     Route: 048
     Dates: start: 20071115
  11. PROGRAF [Suspect]
     Dosage: 0.5-1.0 MG EVERY 12 HOURS
     Route: 042
     Dates: start: 20071022, end: 20071114

REACTIONS (9)
  - ACUTE GRAFT VERSUS HOST DISEASE IN SKIN [None]
  - PYREXIA [None]
  - SENSORY DISTURBANCE [None]
  - DIARRHOEA [None]
  - HYPOMAGNESAEMIA [None]
  - OFF LABEL USE [None]
  - DRUG LEVEL ABOVE THERAPEUTIC [None]
  - TREMOR [None]
  - APHASIA [None]
